FAERS Safety Report 8240845-3 (Version None)
Quarter: 2012Q1

REPORT INFORMATION
  Report Type: 
  Country: None (occurrence: None)
  Receive Date: 20120328
  Receipt Date: 20120319
  Transmission Date: 20120608
  Serious: Yes (Other)
  Sender: FDA-Public Use
  Company Number: BR-ASTRAZENECA-2012SE19135

PATIENT
  Age: 76 Year
  Sex: Male
  Weight: 104 kg

DRUGS (11)
  1. BRILINTA [Suspect]
     Indication: ANGIOPLASTY
     Route: 048
  2. CARVEDILOL [Concomitant]
     Route: 048
     Dates: start: 20010101
  3. CALTREN [Concomitant]
     Route: 048
     Dates: start: 20080101
  4. ATACAND HCT [Suspect]
     Indication: HYPERTENSION
     Dosage: 16/12.5 MG DAILY
     Route: 048
     Dates: start: 20090101
  5. METFORMIN HYDROCHLORIDE [Concomitant]
     Indication: DIABETES MELLITUS
     Route: 048
     Dates: start: 20020101
  6. ISOSORBIDE MONONITRATE [Concomitant]
     Route: 048
     Dates: start: 20010101
  7. VASTAREL [Concomitant]
     Route: 048
     Dates: start: 20070101
  8. INSULINE [Concomitant]
     Indication: DIABETES MELLITUS
     Route: 058
     Dates: start: 20010101
  9. SIMVASTATIN [Concomitant]
     Route: 048
     Dates: start: 20010101
  10. ALDACTONE [Concomitant]
     Route: 048
     Dates: start: 20010101
  11. LIPIDIL [Concomitant]
     Route: 048
     Dates: start: 20090101

REACTIONS (3)
  - IN-STENT ARTERIAL RESTENOSIS [None]
  - OFF LABEL USE [None]
  - ANAL INFLAMMATION [None]
